FAERS Safety Report 9109057 (Version 2)
Quarter: 2013Q1

REPORT INFORMATION
  Report Type: Report from Study
  Country: BR (occurrence: BR)
  Receive Date: 20130222
  Receipt Date: 20130306
  Transmission Date: 20140127
  Serious: Yes (Congenital Anomaly)
  Sender: FDA-Public Use
  Company Number: BR-VIIV HEALTHCARE LIMITED-A1012284A

PATIENT
  Age: 0 None
  Sex: Female
  Weight: 2.9 kg

DRUGS (8)
  1. ZIAGEN [Suspect]
     Indication: ANTIRETROVIRAL THERAPY
     Dosage: 600MG PER DAY
     Route: 064
     Dates: start: 20120803
  2. LEXIVA [Suspect]
     Indication: ANTIRETROVIRAL THERAPY
     Dosage: 1400MG PER DAY
     Route: 064
     Dates: start: 20120711, end: 20120830
  3. LAMIVUDINE + ZIDOVUDINE [Suspect]
     Indication: ANTIRETROVIRAL THERAPY
     Dosage: 2TAB PER DAY
     Route: 064
     Dates: end: 20120521
  4. LAMIVUDINE-HIV [Suspect]
     Indication: ANTIRETROVIRAL THERAPY
     Dosage: 300MG PER DAY
     Route: 064
     Dates: start: 20120521
  5. EFAVIRENZ [Suspect]
     Indication: ANTIRETROVIRAL THERAPY
     Dosage: 600MG PER DAY
     Route: 064
     Dates: end: 20120611
  6. TRUVADA [Suspect]
     Indication: ANTIRETROVIRAL THERAPY
     Dosage: 1TAB PER DAY
     Route: 064
     Dates: start: 20120521
  7. ISENTRESS [Suspect]
     Indication: ANTIRETROVIRAL THERAPY
     Dosage: 800MG PER DAY
     Route: 064
     Dates: start: 20120803
  8. RETROVIR [Suspect]
     Indication: ANTIVIRAL TREATMENT
     Dosage: 210MG PER DAY
     Route: 064
     Dates: start: 20121128, end: 20121128

REACTIONS (3)
  - Diastasis recti abdominis [Unknown]
  - Congenital anomaly [Unknown]
  - Foetal exposure during pregnancy [Unknown]
